FAERS Safety Report 10926183 (Version 1)
Quarter: 2015Q1

REPORT INFORMATION
  Report Type: Report from Study
  Country: IT (occurrence: IT)
  Receive Date: 20150318
  Receipt Date: 20150318
  Transmission Date: 20150721
  Serious: Yes (Death)
  Sender: FDA-Public Use
  Company Number: IT-CELGENE-ITA-2015032084

PATIENT
  Age: 70 Year
  Sex: Female
  Weight: 60 kg

DRUGS (6)
  1. CALCIUM LEVOFOLINATE [Suspect]
     Active Substance: LEVOLEUCOVORIN CALCIUM
     Indication: PANCREATIC CARCINOMA METASTATIC
     Route: 065
     Dates: start: 20140722, end: 20150105
  2. 5-FLUOROURACIL [Suspect]
     Active Substance: FLUOROURACIL
     Route: 065
     Dates: start: 20140722, end: 20150105
  3. OXALIPLATIN. [Suspect]
     Active Substance: OXALIPLATIN
     Indication: PANCREATIC CARCINOMA METASTATIC
     Route: 065
     Dates: start: 20140722, end: 20150105
  4. 5-FLUOROURACIL [Suspect]
     Active Substance: FLUOROURACIL
     Indication: PANCREATIC CARCINOMA METASTATIC
     Route: 040
     Dates: start: 20140722, end: 20150105
  5. ABRAXANE [Suspect]
     Active Substance: PACLITAXEL
     Indication: PANCREATIC CARCINOMA METASTATIC
     Route: 041
     Dates: start: 20140722, end: 20150105
  6. IRINOTECAN [Suspect]
     Active Substance: IRINOTECAN
     Indication: PANCREATIC CARCINOMA METASTATIC
     Route: 065
     Dates: start: 20140722, end: 20150105

REACTIONS (1)
  - Death [Fatal]

NARRATIVE: CASE EVENT DATE: 20150115
